FAERS Safety Report 9848289 (Version 1)
Quarter: 2014Q1

REPORT INFORMATION
  Report Type: Spontaneous
  Country: US (occurrence: None)
  Receive Date: 20140123
  Receipt Date: 20140123
  Transmission Date: 20141002
  Serious: Yes (Hospitalization)
  Sender: FDA-Public Use
  Company Number: None

PATIENT
  Age: 74 Year
  Sex: Female

DRUGS (1)
  1. ENBREL 50MG AMGEN [Suspect]
     Dosage: 50MG  TWICE WEEKLY  SUBQ INJECTION
     Route: 058
     Dates: start: 20050101

REACTIONS (5)
  - Paraesthesia [None]
  - Balance disorder [None]
  - Pulmonary mass [None]
  - Immobile [None]
  - Fall [None]
